FAERS Safety Report 8626733 (Version 2)
Quarter: 2013Q2

REPORT INFORMATION
  Report Type: Spontaneous
  Country: US (occurrence: None)
  Receive Date: 20120607
  Receipt Date: 20130617
  Transmission Date: 20140414
  Serious: Yes (Other)
  Sender: FDA-Public Use
  Company Number: 2012TP000170

PATIENT
  Age: 48 Year
  Sex: Female

DRUGS (18)
  1. LIDODERM [Suspect]
     Indication: ABDOMINAL PAIN
     Dosage: 1 PATCH;1X;TOP
     Route: 061
  2. METHADONE HYDROCHLORIDE [Concomitant]
  3. HYDROMORPHONE HYDROCHLORIDE [Concomitant]
  4. FUROSEMIDE [Concomitant]
  5. ESCITALOPRAM OXALATE [Concomitant]
  6. PANTOPRAZOLE [Concomitant]
  7. SUMATRIPTAN [Concomitant]
  8. TEMAZEPAM [Concomitant]
  9. MIDAZOLAM [Concomitant]
  10. FENTANYL [Concomitant]
  11. PROPOFOL [Concomitant]
  12. SUCCINYLCHOLINE [Concomitant]
  13. CIPROFLOXACIN HYDROCHLORIDE [Concomitant]
  14. METRONIDAZOLE [Concomitant]
  15. VECURONIUM BROMIDE [Concomitant]
  16. DESFLURANE [Concomitant]
  17. KETAMINE HYDROCHLORIDE [Concomitant]
  18. LIDOCAINE [Concomitant]

REACTIONS (1)
  - METHAEMOGLOBINAEMIA [None]
